FAERS Safety Report 20936082 (Version 1)
Quarter: 2022Q2

REPORT INFORMATION
  Report Type: Spontaneous
  Country: PT (occurrence: PT)
  Receive Date: 20220609
  Receipt Date: 20220609
  Transmission Date: 20220721
  Serious: Yes (Other)
  Sender: FDA-Public Use
  Company Number: None

PATIENT
  Age: 45 Year
  Sex: Female

DRUGS (1)
  1. DUTASTERIDE [Suspect]
     Active Substance: DUTASTERIDE
     Indication: Androgenetic alopecia
     Dosage: 0.5 MG, 3X/WEEK, UNIT DOSE : 1.5 MG, FREQUENCY TIME : 1 WEEKS
     Route: 048

REACTIONS (2)
  - Insomnia [Unknown]
  - Off label use [Unknown]
